FAERS Safety Report 6858578-4 (Version None)
Quarter: 2010Q3

REPORT INFORMATION
  Report Type: 
  Country: None (occurrence: None)
  Receive Date: 20100719
  Receipt Date: 20080213
  Transmission Date: 20110219
  Serious: No
  Sender: FDA-Public Use
  Company Number: US-PFIZER INC-2008013773

PATIENT
  Sex: Female
  Weight: 80 kg

DRUGS (10)
  1. CHANTIX [Suspect]
     Indication: SMOKING CESSATION THERAPY
     Route: 048
     Dates: start: 20080202, end: 20080211
  2. OTHER RESPIRATORY SYSTEM PRODUCTS [Concomitant]
     Route: 048
  3. IPRATROPIUM BROMIDE [Concomitant]
     Route: 048
  4. SALBUTAMOL SULFATE [Concomitant]
     Route: 048
  5. ADVAIR DISKUS 100/50 [Concomitant]
     Route: 048
  6. COZAAR [Concomitant]
     Route: 048
     Dates: start: 19980101
  7. FUROSEMIDE [Concomitant]
     Route: 048
  8. METFORMIN HCL [Concomitant]
     Indication: BLOOD GLUCOSE INCREASED
     Route: 048
  9. GLIPIZIDE [Concomitant]
     Indication: BLOOD GLUCOSE INCREASED
     Route: 048
  10. POTASSIUM CHLORIDE [Concomitant]
     Route: 048

REACTIONS (3)
  - DIZZINESS [None]
  - NAUSEA [None]
  - VOMITING [None]
